FAERS Safety Report 7369527-7 (Version None)
Quarter: 2011Q1

REPORT INFORMATION
  Report Type: 
  Country: None (occurrence: None)
  Receive Date: 20110317
  Receipt Date: 20110317
  Transmission Date: 20110831
  Serious: Yes (Life-Threatening, Hospitalization, Other)
  Sender: FDA-Public Use
  Company Number: None

PATIENT
  Age: 83 Year
  Sex: Female
  Weight: 56.6996 kg

DRUGS (2)
  1. AMBIEN [Suspect]
     Indication: INSOMNIA
     Dosage: 1 PILL 1ST DOSE MOUTH
     Dates: start: 20110201
  2. HEART + BP MEDICINE [Concomitant]

REACTIONS (2)
  - ABNORMAL BEHAVIOUR [None]
  - SOMNAMBULISM [None]
